FAERS Safety Report 21520006 (Version 1)
Quarter: 2022Q4

REPORT INFORMATION
  Report Type: Spontaneous
  Country: US (occurrence: US)
  Receive Date: 20221028
  Receipt Date: 20221028
  Transmission Date: 20230113
  Serious: Yes (Other)
  Sender: FDA-Public Use
  Company Number: US-TEVA-2022-US-2819097

PATIENT
  Age: 66 Year
  Sex: Female

DRUGS (1)
  1. COPAXONE [Suspect]
     Active Substance: GLATIRAMER ACETATE
     Indication: Multiple sclerosis
     Dosage: STRENGTH: 20 MG / ML, INJECTION (PFS)
     Route: 065
     Dates: start: 199810

REACTIONS (8)
  - Multiple sclerosis relapse [Unknown]
  - Loss of consciousness [Unknown]
  - Fall [Unknown]
  - Dehydration [Unknown]
  - Exposure to extreme temperature [Unknown]
  - Temperature intolerance [Unknown]
  - Fatigue [Unknown]
  - Product use issue [Unknown]

NARRATIVE: CASE EVENT DATE: 20220701
